FAERS Safety Report 4873438-6 (Version None)
Quarter: 2006Q1

REPORT INFORMATION
  Report Type: 
  Country: None (occurrence: None)
  Receive Date: 20060105
  Receipt Date: 20050929
  Transmission Date: 20060701
  Serious: Yes (Hospitalization, Disabling)
  Sender: FDA-Public Use
  Company Number: DE-ABBOTT-05P-062-0312807-00

PATIENT
  Sex: Female

DRUGS (1)
  1. KLACID [Suspect]
     Indication: TONSILLITIS
     Dates: start: 19970101, end: 19970101

REACTIONS (18)
  - ANAEMIA [None]
  - ASTHENIA [None]
  - CYSTITIS NONINFECTIVE [None]
  - DIARRHOEA [None]
  - DIARRHOEA HAEMORRHAGIC [None]
  - FATIGUE [None]
  - GASTRITIS [None]
  - GASTROINTESTINAL HAEMORRHAGE [None]
  - GASTROINTESTINAL INJURY [None]
  - GENERAL PHYSICAL HEALTH DETERIORATION [None]
  - HAEMORRHOIDS [None]
  - INFLAMMATORY BOWEL DISEASE [None]
  - MALAISE [None]
  - MUCOUS STOOLS [None]
  - MUSCLE SPASMS [None]
  - PAINFUL DEFAECATION [None]
  - PANCREATITIS [None]
  - VOMITING [None]
